FAERS Safety Report 6961534-9 (Version None)
Quarter: 2010Q3

REPORT INFORMATION
  Report Type: 
  Country: None (occurrence: None)
  Receive Date: 20100901
  Receipt Date: 20100824
  Transmission Date: 20110219
  Serious: Yes (Hospitalization)
  Sender: FDA-Public Use
  Company Number: GXKR2010US09561

PATIENT
  Age: 69 Year
  Sex: Female

DRUGS (1)
  1. ALENDRONIC ACID (NGX) [Suspect]
     Route: 065

REACTIONS (4)
  - FEMUR FRACTURE [None]
  - FOOT FRACTURE [None]
  - INTRAMEDULLARY ROD INSERTION [None]
  - PAIN IN EXTREMITY [None]
